FAERS Safety Report 22137174 (Version 2)
Quarter: 2023Q1

REPORT INFORMATION
  Report Type: Report from Study
  Country: US (occurrence: US)
  Receive Date: 20230324
  Receipt Date: 20230327
  Transmission Date: 20230418
  Serious: Yes (Hospitalization, Other)
  Sender: FDA-Public Use
  Company Number: US-ABBVIE-4702670

PATIENT
  Age: 26 Year
  Sex: Male

DRUGS (1)
  1. RINVOQ [Suspect]
     Active Substance: UPADACITINIB
     Indication: Product used for unknown indication
     Route: 048
     Dates: start: 20220708

REACTIONS (8)
  - Nasal septum deviation [Unknown]
  - Pneumonia [Unknown]
  - Septic shock [Unknown]
  - Hyperventilation [Unknown]
  - Hypertension [Unknown]
  - Heart rate increased [Unknown]
  - Immunodeficiency [Unknown]
  - White blood cell count increased [Unknown]

NARRATIVE: CASE EVENT DATE: 20230225
